FAERS Safety Report 10684618 (Version 1)
Quarter: 2014Q4

REPORT INFORMATION
  Report Type: Report from Study
  Country: IT (occurrence: IT)
  Receive Date: 20141231
  Receipt Date: 20141231
  Transmission Date: 20150529
  Serious: Yes (Other)
  Sender: FDA-Public Use
  Company Number: IT-EMCURE-000799

PATIENT

DRUGS (5)
  1. CARMUSTINE [Suspect]
     Active Substance: CARMUSTINE
     Indication: HODGKIN^S DISEASE
     Dosage: ADMINISTERED ON DAY 1 EVERY 42 DAYS FOR A MAXIMUM OF 6 CYCLES
     Route: 042
  2. PREDNISONE/PREDNISONE ACETATE [Suspect]
     Active Substance: PREDNISONE
     Indication: HODGKIN^S DISEASE
     Dosage: ADMINISTERED ON DAY 1-10 EVERY 42 DAYS FOR A MAXIMUM OF 6 CYCLES
     Route: 048
  3. VINBLASTINE/VINBLASTINE SULFATE [Suspect]
     Active Substance: VINBLASTINE\VINBLASTINE SULFATE
     Indication: HODGKIN^S DISEASE
     Dosage: ADMINISTERED ON DAY 1 EVERY 42 DAYS FOR A MAXIMUM OF 6 CYCLES
     Route: 042
  4. PROCARBAZINE/PROCARBAZINE HYDROCHLORIDE [Suspect]
     Active Substance: PROCARBAZINE HYDROCHLORIDE
     Indication: HODGKIN^S DISEASE
     Dosage: ADMINISTERED ON DAY 1-10 EVERY 42 DAYS FOR A MAXIMUM OF 6 CYCLES
     Route: 048
  5. CYCLOPHOSPHAMIDE/CYCLOPHOSPHAMIDE MONOHYDRATE [Suspect]
     Active Substance: CYCLOPHOSPHAMIDE
     Indication: HODGKIN^S DISEASE
     Dosage: ADMINISTERED ON DAY 1 EVERY 42 DAYS FOR A MAXIMUM OF 6 CYCLES
     Route: 042

REACTIONS (1)
  - Pneumonia [Unknown]
